FAERS Safety Report 7734634-3 (Version None)
Quarter: 2011Q3

REPORT INFORMATION
  Report Type: 
  Country: None (occurrence: None)
  Receive Date: 20110907
  Receipt Date: 20110830
  Transmission Date: 20111222
  Serious: Yes (Life-Threatening)
  Sender: FDA-Public Use
  Company Number: JP-MERCK-1107USA01848

PATIENT
  Age: 70 Year
  Sex: Male
  Weight: 78 kg

DRUGS (7)
  1. RABEPRAZOLE SODIUM [Concomitant]
     Indication: DUODENAL ULCER
     Route: 048
     Dates: start: 20110301
  2. ALDACTONE [Concomitant]
     Indication: HYPERTENSION
     Route: 048
     Dates: start: 20100501
  3. MARZULENE-S [Concomitant]
     Indication: DUODENAL ULCER
     Route: 048
     Dates: start: 20110301
  4. MACMET [Concomitant]
     Indication: DUODENAL ULCER
     Route: 048
     Dates: start: 20110301
  5. JANUVIA [Suspect]
     Indication: DIABETES MELLITUS
     Dosage: DOSAGE IS UNCERTAIN DURING A DAY
     Route: 048
     Dates: start: 20100501
  6. JANUVIA [Suspect]
     Indication: HYPERGLYCAEMIA
     Dosage: DOSAGE IS UNCERTAIN DURING A DAY
     Route: 048
     Dates: start: 20100501
  7. CANDESARTAN CILEXETIL [Concomitant]
     Indication: HYPERTENSION
     Route: 048
     Dates: start: 20100501

REACTIONS (1)
  - PANCREATIC CARCINOMA [None]
